FAERS Safety Report 4480808-7 (Version None)
Quarter: 2004Q4

REPORT INFORMATION
  Report Type: 
  Country: None (occurrence: None)
  Receive Date: 20041019
  Receipt Date: 20041011
  Transmission Date: 20050328
  Serious: Yes (Other)
  Sender: FDA-Public Use
  Company Number: 2004238214US

PATIENT
  Age: 72 Year
  Sex: Female

DRUGS (2)
  1. PROVERA [Suspect]
     Dates: start: 19900101, end: 20010101
  2. PREMARIN [Suspect]
     Dates: start: 19850101, end: 20010101

REACTIONS (3)
  - ASTHENIA [None]
  - CEREBROVASCULAR ACCIDENT [None]
  - VISUAL ACUITY REDUCED [None]
